FAERS Safety Report 5170165-5 (Version None)
Quarter: 2006Q4

REPORT INFORMATION
  Report Type: 
  Country: None (occurrence: None)
  Receive Date: 20061212
  Receipt Date: 20061129
  Transmission Date: 20070319
  Serious: Yes (Hospitalization)
  Sender: FDA-Public Use
  Company Number: CA-ELI_LILLY_AND_COMPANY-CA200612000120

PATIENT
  Sex: Male

DRUGS (8)
  1. FORTEO [Suspect]
     Indication: OSTEOPOROSIS
     Dosage: 20 UG, DAILY (1/D)
     Route: 058
     Dates: start: 20060121
  2. SPIRONOLACTONE [Concomitant]
  3. PAROXETINE HCL [Concomitant]
  4. SENNA FRUIT [Concomitant]
  5. PANTOPRAZOLE SODIUM [Concomitant]
  6. CALCIUM [Concomitant]
  7. VITAMIN D [Concomitant]
  8. NADOLOL [Concomitant]

REACTIONS (2)
  - CONFUSIONAL STATE [None]
  - FATIGUE [None]
